FAERS Safety Report 9218108 (Version 1)
Quarter: 2013Q2

REPORT INFORMATION
  Report Type: Spontaneous
  Country: KW (occurrence: KW)
  Receive Date: 20130408
  Receipt Date: 20130408
  Transmission Date: 20140414
  Serious: Yes (Other)
  Sender: FDA-Public Use
  Company Number: KW-GLAXOSMITHKLINE-B0881725A

PATIENT
  Age: 52 Year
  Sex: Male

DRUGS (1)
  1. AVANDIA [Suspect]
     Indication: DIABETES MELLITUS
     Route: 065

REACTIONS (10)
  - Myocardial infarction [Unknown]
  - Headache [Unknown]
  - Somnolence [Unknown]
  - Dizziness [Unknown]
  - Balance disorder [Unknown]
  - Confusional state [Unknown]
  - Vision blurred [Unknown]
  - Visual impairment [Unknown]
  - Dyspnoea [Unknown]
  - Abdominal pain [Unknown]
